FAERS Safety Report 6232916-8 (Version None)
Quarter: 2009Q2

REPORT INFORMATION
  Report Type: 
  Country: None (occurrence: None)
  Receive Date: 20090617
  Receipt Date: 20090610
  Transmission Date: 20091009
  Serious: Yes (Other)
  Sender: FDA-Public Use
  Company Number: GB-BAXTER-2009BH009872

PATIENT
  Age: 78 Year
  Sex: Female
  Weight: 70 kg

DRUGS (14)
  1. METRONIDAZOLE [Suspect]
     Indication: ANTIBIOTIC PROPHYLAXIS
     Route: 042
     Dates: start: 20090513, end: 20090513
  2. CEFUROXIME [Suspect]
     Indication: ANTIBIOTIC PROPHYLAXIS
     Route: 042
     Dates: start: 20090513, end: 20090513
  3. OXYCONTIN [Suspect]
     Indication: PROPHYLAXIS
     Route: 048
     Dates: start: 20090514, end: 20090518
  4. ATRACURIUM [Concomitant]
     Indication: GENERAL ANAESTHESIA
     Route: 065
     Dates: start: 20090513
  5. BENDROFLUMETHIAZIDE [Concomitant]
     Indication: HYPERTENSION
     Route: 048
  6. CYCLIZINE [Concomitant]
     Indication: NAUSEA
     Route: 042
     Dates: start: 20090513, end: 20090513
  7. DALTEPARIN SODIUM [Concomitant]
     Indication: PROPHYLAXIS
     Route: 058
     Dates: start: 20090513, end: 20090522
  8. MIDAZOLAM HCL [Concomitant]
     Indication: GENERAL ANAESTHESIA
     Route: 065
     Dates: start: 20090513
  9. PARACETAMOL [Concomitant]
     Indication: PAIN
     Route: 048
     Dates: start: 20090514
  10. PROPOFOL [Concomitant]
     Indication: GENERAL ANAESTHESIA
     Route: 065
     Dates: start: 20090513
  11. AUGMENTIN '125' [Concomitant]
     Indication: INDUCTION OF ANAESTHESIA
     Route: 065
     Dates: start: 20090315, end: 20090313
  12. CYCLIZINE [Concomitant]
     Indication: INDUCTION OF ANAESTHESIA
     Route: 065
     Dates: start: 20090315, end: 20090315
  13. PROPOFOL [Concomitant]
     Indication: INDUCTION OF ANAESTHESIA
     Route: 065
     Dates: start: 20090315, end: 20090315
  14. FENTANYL [Concomitant]
     Indication: INDUCTION OF ANAESTHESIA
     Route: 065
     Dates: start: 20090315, end: 20090315

REACTIONS (1)
  - BLISTER [None]
